FAERS Safety Report 13321963 (Version 1)
Quarter: 2017Q1

REPORT INFORMATION
  Report Type: Spontaneous
  Country: GB (occurrence: US)
  Receive Date: 20170310
  Receipt Date: 20170310
  Transmission Date: 20170428
  Serious: Yes (Hospitalization)
  Sender: FDA-Public Use
  Company Number: None

PATIENT
  Age: 69 Year
  Sex: Female
  Weight: 55.3 kg

DRUGS (2)
  1. AMLODIPINE [Concomitant]
     Active Substance: AMLODIPINE BESYLATE
  2. TAXOL [Suspect]
     Active Substance: PACLITAXEL
     Dates: end: 20170216

REACTIONS (6)
  - Fatigue [None]
  - C-reactive protein increased [None]
  - Hyponatraemia [None]
  - Cough [None]
  - Hypoalbuminaemia [None]
  - Hypokalaemia [None]

NARRATIVE: CASE EVENT DATE: 20170228
